FAERS Safety Report 13798319 (Version 2)
Quarter: 2018Q2

REPORT INFORMATION
  Report Type: Report from Study
  Country: MX (occurrence: MX)
  Receive Date: 20170727
  Receipt Date: 20180412
  Transmission Date: 20180711
  Serious: Yes (Other)
  Sender: FDA-Public Use
  Company Number: MX-ROCHE-1969130

PATIENT

DRUGS (3)
  1. RITUXIMAB. [Suspect]
     Active Substance: RITUXIMAB
     Indication: WARM TYPE HAEMOLYTIC ANAEMIA
     Dosage: ON DAYS 1, 8, 15, 22.
     Route: 042
  2. PREDNISONE. [Suspect]
     Active Substance: PREDNISONE
     Indication: WARM TYPE HAEMOLYTIC ANAEMIA
     Route: 048
  3. DEXAMETHASONE. [Suspect]
     Active Substance: DEXAMETHASONE
     Indication: WARM TYPE HAEMOLYTIC ANAEMIA
     Dosage: DAYS 1-4
     Route: 042

REACTIONS (3)
  - Miller Fisher syndrome [Unknown]
  - Evans syndrome [Unknown]
  - Systemic lupus erythematosus [Unknown]
